FAERS Safety Report 11171974 (Version 1)
Quarter: 2015Q2

REPORT INFORMATION
  Report Type: Spontaneous
  Country: US (occurrence: US)
  Receive Date: 20150608
  Receipt Date: 20150608
  Transmission Date: 20150821
  Serious: No
  Sender: FDA-Public Use
  Company Number: US-TARO-2014TAR00368

PATIENT
  Age: 1 Year
  Sex: Female

DRUGS (3)
  1. CHILDRENS CETIRIZINE HYDROCHLORIDE SUGAR FREE GRAPE [Suspect]
     Active Substance: CETIRIZINE HYDROCHLORIDE
     Dosage: 1.25 ML, UNK
     Route: 048
     Dates: start: 20140917
  2. CHILDRENS CETIRIZINE HYDROCHLORIDE SUGAR FREE GRAPE [Suspect]
     Active Substance: CETIRIZINE HYDROCHLORIDE
     Dosage: 5 ML, ONCE
     Route: 048
     Dates: start: 20140915, end: 20140915
  3. CHILDRENS CETIRIZINE HYDROCHLORIDE SUGAR FREE GRAPE [Suspect]
     Active Substance: CETIRIZINE HYDROCHLORIDE
     Indication: HYPERSENSITIVITY
     Dosage: 1.25 ML, UNK
     Route: 048
     Dates: end: 20140914

REACTIONS (3)
  - Accidental overdose [Recovered/Resolved]
  - Thirst [Recovered/Resolved]
  - Somnolence [Recovered/Resolved]

NARRATIVE: CASE EVENT DATE: 20140915
